FAERS Safety Report 11841757 (Version 1)
Quarter: 2015Q4

REPORT INFORMATION
  Report Type: Spontaneous
  Country: US (occurrence: US)
  Receive Date: 20151216
  Receipt Date: 20151216
  Transmission Date: 20160305
  Serious: No
  Sender: FDA-Public Use
  Company Number: US-RB-071008-14

PATIENT
  Age: 4 Year
  Sex: Female

DRUGS (1)
  1. DELSYM [Suspect]
     Active Substance: DEXTROMETHORPHAN
     Indication: PRODUCT USED FOR UNKNOWN INDICATION
     Dosage: . DOSING: 1 - 1/2 TEASPOONFULS AND THEN 5 ML ON 25-NOV-2014.,FREQUENCY UNK
     Route: 065
     Dates: start: 20141125

REACTIONS (4)
  - Palpitations [Unknown]
  - Overdose [Unknown]
  - Abdominal discomfort [Unknown]
  - Accidental overdose [None]

NARRATIVE: CASE EVENT DATE: 20141125
